FAERS Safety Report 4811144-4 (Version None)
Quarter: 2005Q4

REPORT INFORMATION
  Report Type: 
  Country: None (occurrence: None)
  Receive Date: 20051027
  Receipt Date: 20051020
  Transmission Date: 20060501
  Serious: Yes (Hospitalization)
  Sender: FDA-Public Use
  Company Number: ES-GLAXOSMITHKLINE-B0398020A

PATIENT
  Age: 97 Year
  Sex: Male

DRUGS (1)
  1. CLAMOXYL [Suspect]
     Indication: TOOTH EXTRACTION
     Dosage: 500MG TWICE PER DAY
     Route: 048
     Dates: start: 20050418, end: 20050424

REACTIONS (2)
  - PRURITUS [None]
  - RASH MACULO-PAPULAR [None]
